FAERS Safety Report 19790114 (Version 1)
Quarter: 2021Q3

REPORT INFORMATION
  Report Type: Spontaneous
  Country: US (occurrence: US)
  Receive Date: 20210905
  Receipt Date: 20210905
  Transmission Date: 20211014
  Serious: Yes (Other)
  Sender: FDA-Public Use
  Company Number: US-BAXTER-2021BAX027433

PATIENT
  Age: 67 Year
  Sex: Female

DRUGS (3)
  1. CLONIDINE. [Suspect]
     Active Substance: CLONIDINE
     Indication: PLEURITIC PAIN
     Dosage: INTRATHECAL PAIN PUMP
     Route: 037
  2. HYDROMORPHONE [Suspect]
     Active Substance: HYDROMORPHONE
     Indication: PLEURITIC PAIN
     Dosage: INTRATHECAL PAIN PUMP
     Route: 037
  3. BUPIVACAINE HYDROCHLORIDE IN 8.25% DEXTROSE INJECTION USP [Suspect]
     Active Substance: BUPIVACAINE HYDROCHLORIDE
     Indication: PLEURITIC PAIN
     Dosage: INTRATHECAL PAIN PUMP
     Route: 037

REACTIONS (2)
  - Constipation [Unknown]
  - Sedation complication [Unknown]
